FAERS Safety Report 17459908 (Version 2)
Quarter: 2020Q1

REPORT INFORMATION
  Report Type: Spontaneous
  Country: ES (occurrence: ES)
  Receive Date: 20200221
  Receipt Date: 20200227
  Transmission Date: 20200409
  Serious: Yes (Other)
  Sender: FDA-Public Use
  Company Number: ES-009507513-2002ESP005693

PATIENT
  Age: 48 Year
  Sex: Male

DRUGS (3)
  1. EMTRICITABINE (+) TENOFOVIR [Suspect]
     Active Substance: EMTRICITABINE\TENOFOVIR
     Indication: ANTIRETROVIRAL THERAPY
     Dosage: UNK
     Dates: start: 20150101, end: 20200128
  2. MAGNESIUM (UNSPECIFIED) [Interacting]
     Active Substance: MAGNESIUM
     Dosage: 200 MILLIGRAM, QD
     Route: 048
     Dates: start: 20191101, end: 20191210
  3. RALTEGRAVIR POTASSIUM [Suspect]
     Active Substance: RALTEGRAVIR POTASSIUM
     Indication: ANTIRETROVIRAL THERAPY
     Dosage: 1200 MG QD
     Route: 048
     Dates: start: 20150101, end: 20200128

REACTIONS (4)
  - Virologic failure [Unknown]
  - Drug interaction [Unknown]
  - Viral load increased [Unknown]
  - Labelled drug-drug interaction medication error [Unknown]

NARRATIVE: CASE EVENT DATE: 2019
